FAERS Safety Report 9128052 (Version 1)
Quarter: 2013Q1

REPORT INFORMATION
  Report Type: Report from Study
  Country: US (occurrence: US)
  Receive Date: 20130125
  Receipt Date: 20130125
  Transmission Date: 20140127
  Serious: Yes (Other)
  Sender: FDA-Public Use
  Company Number: US-ROCHE-1183450

PATIENT
  Sex: 0

DRUGS (4)
  1. RITUXIMAB [Suspect]
     Indication: MANTLE CELL LYMPHOMA
     Dosage: ON DAY 1 CONSECUTIVE 28-DAY CYCLES
     Route: 065
  2. RITUXIMAB [Suspect]
     Indication: NON-HODGKIN^S LYMPHOMA
  3. BENDAMUSTINE [Suspect]
     Indication: NON-HODGKIN^S LYMPHOMA
     Dosage: 30 MIN INFUSION ON DAY 1 AND 2 OF 6 TO 8 CONSECUTIVE 28-DAY CYCLES
     Route: 065
  4. BENDAMUSTINE [Suspect]
     Indication: MANTLE CELL LYMPHOMA

REACTIONS (5)
  - Neutropenia [Unknown]
  - Transient acantholytic dermatosis [Unknown]
  - Bacteraemia [Unknown]
  - Pyrexia [Unknown]
  - Febrile neutropenia [Unknown]
